FAERS Safety Report 7518097-9 (Version None)
Quarter: 2011Q2

REPORT INFORMATION
  Report Type: 
  Country: None (occurrence: None)
  Receive Date: 20110531
  Receipt Date: 20110531
  Transmission Date: 20111010
  Serious: Yes (Hospitalization)
  Sender: FDA-Public Use
  Company Number: None

PATIENT
  Sex: Female

DRUGS (1)
  1. COPAXONE [Suspect]
     Dosage: 20MG(1ML) DAILY SQ
     Route: 058
     Dates: start: 20110104, end: 20110522

REACTIONS (3)
  - PALPITATIONS [None]
  - DIZZINESS [None]
  - DYSPNOEA [None]
